FAERS Safety Report 23496103 (Version 1)
Quarter: 2024Q1

REPORT INFORMATION
  Report Type: Spontaneous
  Country: US (occurrence: None)
  Receive Date: 20240207
  Receipt Date: 20240207
  Transmission Date: 20240410
  Serious: No
  Sender: FDA-Public Use
  Company Number: US-ROCHE-3351142

PATIENT
  Sex: Female

DRUGS (3)
  1. XOLAIR [Suspect]
     Active Substance: OMALIZUMAB
     Indication: Type 2 diabetes mellitus
     Dosage: VIAL
     Route: 058
  2. XOLAIR [Suspect]
     Active Substance: OMALIZUMAB
     Indication: Hyperglycaemia
  3. TRULICITY [Concomitant]
     Active Substance: DULAGLUTIDE

REACTIONS (2)
  - Off label use [Unknown]
  - No adverse event [Unknown]
